FAERS Safety Report 9146148 (Version 3)
Quarter: 2013Q2

REPORT INFORMATION
  Report Type: Report from Study
  Country: AU (occurrence: AU)
  Receive Date: 20130307
  Receipt Date: 20130524
  Transmission Date: 20140414
  Serious: Yes (Other)
  Sender: FDA-Public Use
  Company Number: PHHY2013AU012173

PATIENT
  Age: 5 Year
  Sex: Male
  Weight: 16 kg

DRUGS (12)
  1. GLIVEC [Suspect]
     Indication: GRAFT VERSUS HOST DISEASE
     Dosage: 100 MG, DAILY
     Route: 048
     Dates: start: 201108
  2. GLIVEC [Suspect]
     Dosage: 50 MG, PER DAY
     Route: 048
     Dates: start: 20120716, end: 20120812
  3. GLIVEC [Suspect]
     Dosage: 100 MG, PER DAY
     Route: 048
     Dates: start: 20120813, end: 20121129
  4. GLIVEC [Suspect]
     Dosage: 150 MG, UNK
     Dates: start: 20121130
  5. GLIVEC [Suspect]
     Dosage: 100 MG, DAILY
  6. STEROIDS NOS [Concomitant]
     Dosage: UNK UKN, UNK
  7. PREDNISOLONE [Concomitant]
     Dosage: 2 MG/KG, PER DAY
     Route: 048
     Dates: start: 20120605, end: 20120618
  8. PREDNISOLONE [Concomitant]
     Dosage: 1 MG/KG, PER DAY
     Route: 048
     Dates: start: 20120619, end: 20120625
  9. PREDNISOLONE [Concomitant]
     Dosage: 0.75 MG/KG, PER DAY
     Route: 048
     Dates: start: 20120626
  10. PREDNISOLONE [Concomitant]
     Dosage: 0.5 MG/KG, PER DAY (SLOW TAPERRING)
     Route: 048
     Dates: start: 20120626
  11. MYCOPHENOLATE MOFETIL [Concomitant]
     Dosage: 200 MG, BID
     Dates: start: 20120702
  12. CYCLOSPORINE [Concomitant]
     Dosage: UNK UKN, UNK

REACTIONS (6)
  - Wound decomposition [Recovering/Resolving]
  - Staphylococcal infection [Recovered/Resolved]
  - Growth retardation [Not Recovered/Not Resolved]
  - Pyrexia [Recovered/Resolved]
  - Rash erythematous [Recovered/Resolved]
  - Erythema [Unknown]
